FAERS Safety Report 25759840 (Version 1)
Quarter: 2025Q3

REPORT INFORMATION
  Report Type: Other
  Country: CA (occurrence: CA)
  Receive Date: 20250904
  Receipt Date: 20250904
  Transmission Date: 20251021
  Serious: Yes (Hospitalization, Other)
  Sender: APOTEX
  Company Number: CA-PGRTD-E2B_07956239

PATIENT
  Age: 55 Year
  Sex: Female

DRUGS (4)
  1. AMOXICILLIN\CLAVULANATE POTASSIUM [Suspect]
     Active Substance: AMOXICILLIN\CLAVULANATE POTASSIUM
     Indication: Product used for unknown indication
     Route: 065
  2. SIMPONI [Suspect]
     Active Substance: GOLIMUMAB
     Indication: Rheumatoid arthritis
     Route: 058
  3. SIMPONI [Suspect]
     Active Substance: GOLIMUMAB
     Route: 058
  4. SIMPONI [Suspect]
     Active Substance: GOLIMUMAB
     Route: 058

REACTIONS (9)
  - Gastrointestinal disorder [Not Recovered/Not Resolved]
  - COVID-19 [Not Recovered/Not Resolved]
  - Palpitations [Not Recovered/Not Resolved]
  - Rheumatoid arthritis [Not Recovered/Not Resolved]
  - Influenza [Not Recovered/Not Resolved]
  - Colitis [Not Recovered/Not Resolved]
  - Malaise [Not Recovered/Not Resolved]
  - Dizziness [Not Recovered/Not Resolved]
  - Therapeutic product effect decreased [Not Recovered/Not Resolved]
